FAERS Safety Report 10948029 (Version 2)
Quarter: 2015Q1

REPORT INFORMATION
  Report Type: Spontaneous
  Country: None (occurrence: None)
  Receive Date: 20150320
  Receipt Date: 20150331
  Transmission Date: 20150721
  Serious: Yes (Hospitalization)
  Sender: FDA-Public Use
  Company Number: 150080

PATIENT
  Age: 73 Year
  Sex: Female
  Weight: 102.97 kg

DRUGS (3)
  1. METFORMIN [Concomitant]
     Active Substance: METFORMIN HYDROCHLORIDE
  2. VICTOZA [Concomitant]
     Active Substance: LIRAGLUTIDE
  3. SUPREP BOWEL PREP [Suspect]
     Active Substance: MAGNESIUM SULFATE\POTASSIUM SULFATE\SODIUM SULFATE
     Indication: COLONOSCOPY
     Dosage: 2 X 6 OZ. BOTTLE 1X PO
     Route: 048
     Dates: start: 20150310, end: 20150311

REACTIONS (9)
  - Vomiting [None]
  - Pyrexia [None]
  - Abdominal pain [None]
  - Hypertension [None]
  - Hyperlipidaemia [None]
  - Chills [None]
  - Muscle spasms [None]
  - Electrolyte imbalance [None]
  - Colitis [None]
